FAERS Safety Report 7442321-4 (Version None)
Quarter: 2011Q2

REPORT INFORMATION
  Report Type: 
  Country: None (occurrence: None)
  Receive Date: 20110428
  Receipt Date: 20110420
  Transmission Date: 20111010
  Serious: Yes (Hospitalization)
  Sender: FDA-Public Use
  Company Number: CA-ROCHE-711017

PATIENT
  Sex: Female
  Weight: 41.3 kg

DRUGS (48)
  1. FLUOROURACIL [Suspect]
     Dosage: CYCLE 3. CYCLE 7 TREATMENT DELAYED.
     Route: 042
     Dates: start: 20100722
  2. TYLENOL W/ CODEINE NO. 3 [Concomitant]
     Dosage: TDD: PRN
     Dates: start: 20101101, end: 20101101
  3. POTASSIUM CHLORIDE [Concomitant]
     Dates: start: 20101202, end: 20101203
  4. MAGNESIUM GLUCOHEPTONATE [Concomitant]
     Dates: start: 20101209, end: 20101209
  5. EPIRUBICIN [Suspect]
     Dosage: DOSE REDUCED. CYCLE 7 TREATMENT DELAYED.
     Route: 042
     Dates: start: 20100630
  6. ONDANSETRON [Concomitant]
     Dosage: FREQ: PRN
     Dates: start: 20101119, end: 20101119
  7. ONDANSETRON [Concomitant]
     Dosage: FREQUENCY: PRN
     Dates: start: 20101201, end: 20101201
  8. DALTEPARIN [Concomitant]
     Dosage: TDD: 5000 UNITS
     Dates: start: 20101125, end: 20101215
  9. GRAVOL TAB [Concomitant]
     Dates: start: 20101125, end: 20101125
  10. GRAVOL TAB [Concomitant]
     Dates: start: 20101127, end: 20101202
  11. POTASSIUM CHLORIDE [Concomitant]
     Dates: start: 20101126, end: 20101126
  12. POTASSIUM CHLORIDE [Concomitant]
     Dates: start: 20101207, end: 20101207
  13. SODIUM BICARBONATE [Concomitant]
     Dates: start: 20101206, end: 20101206
  14. LASIX [Concomitant]
     Dates: start: 20101210, end: 20101210
  15. NASONEX [Concomitant]
     Dosage: TOTAL DAILY DOSE: 1 PUFF PRN
     Dates: start: 19950101
  16. POTASSIUM CHLORIDE [Concomitant]
     Dates: start: 20101208, end: 20101208
  17. TRASTUZUMAB [Suspect]
     Dosage: LAST DOSE:22 JULY 2010. DOSAGE FORM:INFUSION
     Route: 042
  18. PERTUZUMAB [Suspect]
     Dosage: LOADING DOSE.
     Route: 042
     Dates: start: 20100609
  19. MAXERAN [Concomitant]
     Route: 042
     Dates: start: 20100609, end: 20100609
  20. FLUOROURACIL [Suspect]
     Dosage: LAST DOSE:22 JULY 2010
     Route: 042
     Dates: start: 20100609
  21. ADVIL [Concomitant]
     Dosage: DRUG: ADVIL SINUS
     Dates: start: 19950101
  22. ONDANSETRON [Concomitant]
     Dosage: FREQUENCY: PRN
     Dates: start: 20101026, end: 20101128
  23. MAXERAN [Concomitant]
     Route: 042
     Dates: start: 20101110, end: 20101202
  24. MAGNESIUM GLUCOHEPTONATE [Concomitant]
     Dates: start: 20101210, end: 20101210
  25. TRASTUZUMAB [Suspect]
     Dosage: LOADING DOSE, FORM: INFUSION
     Route: 042
     Dates: start: 20100609
  26. EPIRUBICIN [Suspect]
     Route: 042
     Dates: start: 20100609
  27. FLUOROURACIL [Suspect]
     Dosage: DOSE REDUCTION AT CYCLE 2
     Route: 042
     Dates: start: 20100630
  28. VITAMIN B COMPLEX CAP [Concomitant]
     Route: 048
     Dates: start: 20070101, end: 20100609
  29. ONDANSETRON [Concomitant]
     Dates: start: 20100609, end: 20100722
  30. VITAMIN K TAB [Concomitant]
     Dates: start: 20101125, end: 20101125
  31. POTASSIUM CHLORIDE [Concomitant]
     Dates: start: 20101205, end: 20101205
  32. CYCLOPHOSPHAMIDE [Suspect]
     Dosage: FORM:INFUSION
     Route: 042
     Dates: start: 20100609
  33. CYCLOPHOSPHAMIDE [Suspect]
     Dosage: DOSE REDUCTION AT CYCLE 2
     Route: 042
     Dates: start: 20100630
  34. DEXAMETHASONE [Concomitant]
     Dosage: DAY 1 EACH CYCLE
     Dates: start: 20100608
  35. DEXAMETHASONE [Concomitant]
     Dates: start: 20100609, end: 20100609
  36. MULTI-VITAMIN [Concomitant]
     Dates: start: 20101127, end: 20101215
  37. MAGNESIUM GLUCOHEPTONATE [Concomitant]
     Dates: start: 20101208, end: 20101208
  38. TRASTUZUMAB [Suspect]
     Dosage: LAST DOSE PRIOR TO SAE: 30 OCTOBER 2010, CYCLE 7 TREATMENT DELAYED.
     Route: 042
  39. PERTUZUMAB [Suspect]
     Dosage: LAST DOSE:30 SEPTEMBER 2010. DOSAGE FORM:INFUSION. CYCLE 7 TREATMENT DELAYED.
     Route: 042
  40. CYCLOPHOSPHAMIDE [Suspect]
     Dosage: CYCLE 7 TREATMENT DELAYED.
     Route: 042
     Dates: start: 20100722
  41. DOCETAXEL [Suspect]
     Dosage: LAST DOSE:30 SEPTEMBER 2010. DOSAGE FORM:INFUSION. CYCLE 7 TREATMENT DELAYED.
     Route: 042
     Dates: start: 20100819
  42. OMEGA [Concomitant]
     Dosage: DRUG: OMEGA 3
     Route: 048
     Dates: start: 20070101, end: 20100609
  43. REACTINE [Concomitant]
     Dates: start: 19950101
  44. ONDANSETRON [Concomitant]
     Dosage: FREQUENCY: PRN
     Dates: start: 20101210, end: 20101215
  45. MULTI-VITAMIN [Concomitant]
     Dates: start: 20000101
  46. VITAMIN K TAB [Concomitant]
     Dates: start: 20101127, end: 20101127
  47. GRAVOL TAB [Concomitant]
     Dates: start: 20101117, end: 20101118
  48. THIAMINE [Concomitant]
     Dates: start: 20101206, end: 20101213

REACTIONS (2)
  - URINARY TRACT INFECTION [None]
  - PSEUDOMEMBRANOUS COLITIS [None]
